FAERS Safety Report 8244666-7 (Version None)
Quarter: 2012Q1

REPORT INFORMATION
  Report Type: 
  Country: None (occurrence: None)
  Receive Date: 20120329
  Receipt Date: 20111228
  Transmission Date: 20120608
  Serious: No
  Sender: FDA-Public Use
  Company Number: US-MYLANLABS-2012S1000052

PATIENT
  Age: 89 Year
  Sex: Female

DRUGS (1)
  1. FENTANYL-100 [Suspect]
     Indication: PAIN
     Route: 062
     Dates: start: 20111101, end: 20111216

REACTIONS (6)
  - DYSPNOEA [None]
  - ANXIETY [None]
  - FEELING HOT [None]
  - BURNING SENSATION [None]
  - FLUSHING [None]
  - APPLICATION SITE SWELLING [None]
